FAERS Safety Report 12290276 (Version 1)
Quarter: 2016Q2

REPORT INFORMATION
  Report Type: Spontaneous
  Country: US (occurrence: US)
  Receive Date: 20160421
  Receipt Date: 20160421
  Transmission Date: 20160815
  Serious: No
  Sender: FDA-Public Use
  Company Number: US-ALVOGEN-2015-ALVOGEN-018147

PATIENT
  Age: 57 Year
  Sex: Female
  Weight: 79.38 kg

DRUGS (4)
  1. ATENOLOL. [Suspect]
     Active Substance: ATENOLOL
     Indication: SINUS TACHYCARDIA
     Route: 048
     Dates: start: 20150912, end: 20150914
  2. ATENOLOL. [Suspect]
     Active Substance: ATENOLOL
     Indication: BUNDLE BRANCH BLOCK LEFT
     Route: 048
     Dates: start: 20150915
  3. ATENOLOL. [Suspect]
     Active Substance: ATENOLOL
     Indication: SINUS TACHYCARDIA
     Route: 048
     Dates: start: 20150915
  4. ATENOLOL. [Suspect]
     Active Substance: ATENOLOL
     Indication: BUNDLE BRANCH BLOCK LEFT
     Route: 048
     Dates: start: 20150912, end: 20150914

REACTIONS (3)
  - Heart rate irregular [Recovered/Resolved]
  - Palpitations [Recovered/Resolved]
  - Blood pressure increased [Recovered/Resolved]

NARRATIVE: CASE EVENT DATE: 20150912
